FAERS Safety Report 8699452 (Version 2)
Quarter: 2013Q3

REPORT INFORMATION
  Report Type: Spontaneous
  Country: US (occurrence: US)
  Receive Date: 20120802
  Receipt Date: 20130819
  Transmission Date: 20140515
  Serious: No
  Sender: FDA-Public Use
  Company Number: US-BRISTOL-MYERS SQUIBB COMPANY-16471419

PATIENT
  Sex: Female

DRUGS (1)
  1. REYATAZ [Suspect]
     Dosage: DOSAGE STREGTH: 200 MG

REACTIONS (1)
  - Medication error [Unknown]
